FAERS Safety Report 8967847 (Version 3)
Quarter: 2013Q2

REPORT INFORMATION
  Report Type: Report from Study
  Country: JP (occurrence: JP)
  Receive Date: 20121218
  Receipt Date: 20130624
  Transmission Date: 20140414
  Serious: Yes (Hospitalization, Other)
  Sender: FDA-Public Use
  Company Number: JP-009507513-1210JPN012057

PATIENT
  Age: 77 Year
  Sex: Male
  Weight: 68 kg

DRUGS (12)
  1. PEGINTRON [Suspect]
     Indication: CHRONIC HEPATITIS C
     Dosage: 1.5 MICROGRAM PER KILOGRAM, UNK
     Route: 058
     Dates: start: 20120427, end: 20120511
  2. PEGINTRON [Suspect]
     Dosage: 1.5 MICROGRAM PER KILOGRAM, UNK
     Route: 058
     Dates: start: 20120525, end: 20120525
  3. PEGINTRON [Suspect]
     Dosage: UNK, 60 MICROGRAM/BODY/WEEK
     Route: 058
     Dates: start: 20120601, end: 20120601
  4. PEGINTRON [Suspect]
     Dosage: 1.5 MICROGRAM PER KILOGRAM, UNK
     Route: 058
     Dates: start: 20120608, end: 20120831
  5. PEGINTRON [Suspect]
     Dosage: 1.125 MICROGRAM PER KILOGRAM, UNK
     Route: 058
     Dates: start: 20120907, end: 20120907
  6. PEGINTRON [Suspect]
     Dosage: 1.5 MICROGRAM PER KILOGRAM, UNK
     Route: 058
     Dates: start: 20120914, end: 20120914
  7. PEGINTRON [Suspect]
     Dosage: 1.125 MICROGRAM PER KILOGRAM, UNK
     Route: 058
     Dates: start: 20120921, end: 20121005
  8. PEGINTRON [Suspect]
     Dosage: UNK
  9. REBETOL [Suspect]
     Indication: CHRONIC HEPATITIS C
     Dosage: 400 MG, QD, CUMULATIVE DOSE 8800MG
     Route: 048
     Dates: start: 20120427, end: 20120802
  10. REBETOL [Suspect]
     Dosage: 400 MG, QD, CUMULATIVE DOSE: 8800MG
     Route: 048
     Dates: start: 20120921, end: 20121011
  11. REBETOL [Suspect]
     Dosage: UNK
  12. TELAVIC [Suspect]
     Indication: CHRONIC HEPATITIS C
     Dosage: 1500 MG, UNK
     Route: 048
     Dates: start: 20120427, end: 20120720

REACTIONS (2)
  - Neutrophil count decreased [Recovered/Resolved]
  - Anaemia [Recovering/Resolving]
